FAERS Safety Report 7437849-7 (Version None)
Quarter: 2011Q2

REPORT INFORMATION
  Report Type: 
  Country: None (occurrence: None)
  Receive Date: 20110426
  Receipt Date: 20110425
  Transmission Date: 20111010
  Serious: Yes (Other)
  Sender: FDA-Public Use
  Company Number: A0915860A

PATIENT
  Age: 84 Year
  Sex: Female

DRUGS (2)
  1. NO CONCURRENT MEDICATION [Concomitant]
  2. EVOCLIN [Suspect]
     Indication: ACNE
     Dosage: 1APP PER DAY
     Route: 061
     Dates: start: 20110115, end: 20110218

REACTIONS (5)
  - ABDOMINAL PAIN [None]
  - HAEMORRHAGE [None]
  - VISION BLURRED [None]
  - DIARRHOEA HAEMORRHAGIC [None]
  - WEIGHT DECREASED [None]
